FAERS Safety Report 7149605-8 (Version None)
Quarter: 2010Q4

REPORT INFORMATION
  Report Type: 
  Country: None (occurrence: None)
  Receive Date: 20101209
  Receipt Date: 20101117
  Transmission Date: 20110411
  Serious: Yes (Life-Threatening, Hospitalization)
  Sender: FDA-Public Use
  Company Number: JP-AMGEN-JPNSP2010005545

PATIENT

DRUGS (6)
  1. ENBREL [Suspect]
     Indication: RHEUMATOID ARTHRITIS
     Dosage: 50 MG, WEEKLY
     Route: 058
     Dates: start: 20070810
  2. ENBREL [Suspect]
     Dosage: 25 MG, WEEKLY
     Route: 058
     Dates: start: 20070810, end: 20071216
  3. ENBREL [Suspect]
     Dosage: 25 MG, 2X/WEEK
     Dates: start: 20081207, end: 20101105
  4. RHEUMATREX [Concomitant]
     Indication: RHEUMATOID ARTHRITIS
     Dosage: 8 MG, WEEKLY
     Route: 048
     Dates: start: 20070810, end: 20101105
  5. RHEUMATREX [Concomitant]
     Dosage: 8 MG, WEEKLY
     Route: 048
     Dates: start: 20070810, end: 20100822
  6. RHEUMATREX [Concomitant]
     Dosage: 4 MG, WEEKLY
     Route: 048
     Dates: start: 20100823, end: 20101105

REACTIONS (1)
  - LUNG ADENOCARCINOMA [None]
